FAERS Safety Report 8756404 (Version 4)
Quarter: 2012Q4

REPORT INFORMATION
  Report Type: Spontaneous
  Country: JP (occurrence: None)
  Receive Date: 20120814
  Receipt Date: 20121009
  Transmission Date: 20130627
  Serious: Yes (Hospitalization, Disabling)
  Sender: FDA-Public Use
  Company Number: TCI2012A04277

PATIENT
  Age: 92 Year
  Sex: Male

DRUGS (6)
  1. LANSOPRAZOLE [Suspect]
     Indication: GASTRIC ULCER PROPHYLAXIS
     Route: 048
     Dates: start: 20110315, end: 20120201
  2. NESINA [Concomitant]
  3. BUFFERIN [Concomitant]
  4. LASIX(FUROSEMIDE) [Concomitant]
  5. ANCARON(AMIODARONE HYDROCHLORIDE) [Concomitant]
  6. JANUVIA(SITAGLIPTIN PHOSPHATE) [Concomitant]

REACTIONS (3)
  - Subdural haematoma [None]
  - Skull fracture [None]
  - Fall [None]
